FAERS Safety Report 22045603 (Version 1)
Quarter: 2023Q1

REPORT INFORMATION
  Report Type: Spontaneous
  Country: US (occurrence: US)
  Receive Date: 20230228
  Receipt Date: 20230228
  Transmission Date: 20230418
  Serious: Yes (Other)
  Sender: FDA-Public Use
  Company Number: US-FreseniusKabi-FK202302536

PATIENT
  Age: 87 Year
  Sex: Female

DRUGS (2)
  1. METHYLPREDNISOLONE [Suspect]
     Active Substance: METHYLPREDNISOLONE
     Indication: Endocrine ophthalmopathy
     Dosage: METHYLPREDNISOLONE WAS GIVEN 1 GRAM QD (ONCE A DAY) FOR 3 DAYS.
     Route: 042
  2. METHIMAZOLE [Concomitant]
     Active Substance: METHIMAZOLE
     Indication: Hyperthyroidism

REACTIONS (3)
  - Hallucination [Unknown]
  - Blood glucose increased [Unknown]
  - Hypertension [Unknown]
